FAERS Safety Report 7353199-1 (Version None)
Quarter: 2011Q1

REPORT INFORMATION
  Report Type: 
  Country: None (occurrence: None)
  Receive Date: 20110310
  Receipt Date: 20110310
  Transmission Date: 20110831
  Serious: Yes (Other)
  Sender: FDA-Public Use
  Company Number: None

PATIENT
  Age: 5 Year
  Sex: Female
  Weight: 18.5 kg

DRUGS (2)
  1. GAMMAGARD LIQUID [Suspect]
     Indication: ENCEPHALITIS ALLERGIC
     Dosage: 20G MONTHLY IV DRIP
     Route: 041
     Dates: start: 20100801
  2. ACETAMINOPHEN [Concomitant]

REACTIONS (3)
  - VOMITING [None]
  - HEADACHE [None]
  - PYREXIA [None]
